FAERS Safety Report 15411083 (Version 1)
Quarter: 2018Q3

REPORT INFORMATION
  Report Type: Spontaneous
  Country: US (occurrence: US)
  Receive Date: 20180919
  Receipt Date: 20180919
  Transmission Date: 20181010
  Serious: Yes (Disabling, Other)
  Sender: FDA-Public Use
  Company Number: None

PATIENT
  Age: 18 Year
  Sex: Female

DRUGS (1)
  1. TESTOSTERONE. [Suspect]
     Active Substance: TESTOSTERONE
     Indication: GENDER DYSPHORIA

REACTIONS (8)
  - Quality of life decreased [None]
  - Dissociation [None]
  - Educational problem [None]
  - Emotional distress [None]
  - Mastectomy [None]
  - Anxiety [None]
  - Emotional disorder [None]
  - Depression [None]
